FAERS Safety Report 15814808 (Version 1)
Quarter: 2019Q1

REPORT INFORMATION
  Report Type: Spontaneous
  Country: US (occurrence: US)
  Receive Date: 20190111
  Receipt Date: 20190111
  Transmission Date: 20190417
  Serious: Yes (Death)
  Sender: FDA-Public Use
  Company Number: US-INSYS THERAPEUTICS, INC-INS201901-000010

PATIENT
  Age: 45 Year
  Sex: Male

DRUGS (9)
  1. COCAETHYLENE [Suspect]
     Active Substance: COCAETHYLENE
  2. COCAINE [Suspect]
     Active Substance: COCAINE
  3. DRONABINOL. [Suspect]
     Active Substance: DRONABINOL
     Indication: PRODUCT USED FOR UNKNOWN INDICATION
  4. ETHYL ALCOHOL [Suspect]
     Active Substance: ALCOHOL
  5. DELTA-9 CARBOXY THC [Suspect]
     Active Substance: DELTA(9)-TETRAHYDROCANNABINOLIC ACID
  6. DIPHENHYDRAMINE. [Suspect]
     Active Substance: DIPHENHYDRAMINE
  7. 11-HYDROXY DELTA-9 THC [Suspect]
     Active Substance: 11-HYDROXY-.DELTA.9-TETRAHYDROCANNABINOL
  8. CYCLOPROPYLFENTANYL [Suspect]
     Active Substance: CYCLOPROPYLFENTANYL
  9. BENZOYLECGONINE [Suspect]
     Active Substance: BENZOYLECGONINE

REACTIONS (1)
  - Death [Fatal]

NARRATIVE: CASE EVENT DATE: 2017
